FAERS Safety Report 7230502 (Version 3)
Quarter: 2014Q2

REPORT INFORMATION
  Report Type: Spontaneous
  Country: US (occurrence: None)
  Receive Date: 20091208
  Receipt Date: 20140428
  Transmission Date: 20141212
  Serious: Yes (Other)
  Sender: FDA-Public Use
  Company Number: 2009S1008616

PATIENT
  Age: 61 Year
  Sex: Male

DRUGS (3)
  1. FLEET PHOSPHO-SODA ORAL SALINE LAXATIVE, GINGER-LEMON FLAVOR (ORAL SOLUTION) [Suspect]
     Indication: COLONOSCOPY
     Dosage: 2 IN 24 HOURS
     Route: 048
     Dates: start: 20021104, end: 20021104
  2. DIOVAN (VALSARTAN) [Concomitant]
  3. DARVOCET (PARACETAMOL DEXTROPROPOXYPHENE) [Concomitant]

REACTIONS (2)
  - Glomerular filtration rate decreased [None]
  - Renal failure chronic [None]
